FAERS Safety Report 5419141-5 (Version None)
Quarter: 2007Q3

REPORT INFORMATION
  Report Type: 
  Country: None (occurrence: None)
  Receive Date: 20070820
  Receipt Date: 20070813
  Transmission Date: 20080115
  Serious: Yes (Death, Hospitalization)
  Sender: FDA-Public Use
  Company Number: PHBS2007IT13536

PATIENT
  Age: 47 Year
  Sex: Male

DRUGS (3)
  1. CYCLOSPORINE [Suspect]
     Indication: LIVER TRANSPLANT
     Route: 065
  2. BASILIXIMAB [Concomitant]
     Indication: LIVER TRANSPLANT
     Route: 065
  3. MYCOPHENOLATE MOFETIL [Suspect]
     Indication: LIVER TRANSPLANT
     Route: 065

REACTIONS (8)
  - B-CELL LYMPHOMA [None]
  - BILE DUCT STENOSIS [None]
  - BILIARY SEPSIS [None]
  - BILIARY SPHINCTEROTOMY [None]
  - EPSTEIN-BARR VIRUS INFECTION [None]
  - HEPATIC MASS [None]
  - LYMPHOPROLIFERATIVE DISORDER [None]
  - PROSTHESIS IMPLANTATION [None]
